FAERS Safety Report 26130825 (Version 1)
Quarter: 2025Q4

REPORT INFORMATION
  Report Type: Spontaneous
  Country: US (occurrence: None)
  Receive Date: 20251208
  Receipt Date: 20251208
  Transmission Date: 20260117
  Serious: Yes (Life-Threatening, Hospitalization)
  Sender: FDA-CTU
  Company Number: None

PATIENT
  Age: 75 Year
  Sex: Male
  Weight: 91 kg

DRUGS (4)
  1. EMPAGLIFLOZIN [Suspect]
     Active Substance: EMPAGLIFLOZIN
     Indication: Diabetes mellitus
     Dosage: 12.5 MG EVERY DAY PO?
     Route: 048
     Dates: start: 20191003, end: 20251106
  2. EMPAGLIFLOZIN [Suspect]
     Active Substance: EMPAGLIFLOZIN
     Indication: Hypertension
  3. SEMAGLUTIDE [Suspect]
     Active Substance: SEMAGLUTIDE
     Indication: Diabetes mellitus
     Dosage: 0.25MG/ML- 1MG/ML QWEEK SQ?
     Route: 058
     Dates: start: 20231023, end: 20231106
  4. SEMAGLUTIDE [Suspect]
     Active Substance: SEMAGLUTIDE
     Indication: Cardiovascular disorder

REACTIONS (4)
  - Blood creatinine increased [None]
  - Euglycaemic diabetic ketoacidosis [None]
  - Hypotension [None]
  - Bacteraemia [None]

NARRATIVE: CASE EVENT DATE: 20251106
